FAERS Safety Report 13756445 (Version 1)
Quarter: 2017Q3

REPORT INFORMATION
  Report Type: Report from Study
  Country: US (occurrence: US)
  Receive Date: 20170714
  Receipt Date: 20170714
  Transmission Date: 20171127
  Serious: Yes (Hospitalization, Other)
  Sender: FDA-Public Use
  Company Number: US-GILEAD-2017-0282624

PATIENT
  Age: 42 Year
  Sex: Male
  Weight: 59.1 kg

DRUGS (31)
  1. STAVUDINE. [Suspect]
     Active Substance: STAVUDINE
     Dosage: 20 MG, BID
     Route: 048
     Dates: start: 20110801
  2. LOPERAMIDE [Concomitant]
     Active Substance: LOPERAMIDE
     Indication: DIARRHOEA
     Dosage: UNK
     Route: 048
     Dates: start: 20110226
  3. TENOFOVIR DISOPROXIL FUMARATE. [Suspect]
     Active Substance: TENOFOVIR DISOPROXIL FUMARATE
     Indication: HIV INFECTION
     Dosage: 300 MG, QID
     Route: 048
     Dates: start: 20110225, end: 20110715
  4. RITONAVIR. [Suspect]
     Active Substance: RITONAVIR
     Indication: HIV INFECTION
     Dosage: 200 MG, QD
     Route: 048
     Dates: start: 20110513, end: 20110715
  5. DIPHENOXYLATE/ATROPINE [Concomitant]
     Active Substance: ATROPINE\DIPHENOXYLATE
     Indication: DIARRHOEA
     Dosage: UNK
     Route: 048
     Dates: start: 20110330
  6. LIDOCAINE. [Concomitant]
     Active Substance: LIDOCAINE
     Indication: CYTOMEGALOVIRUS CHORIORETINITIS
     Dosage: UNK
     Route: 061
     Dates: start: 20110311
  7. AZITHROMYCIN ANHYDROUS. [Concomitant]
     Active Substance: AZITHROMYCIN ANHYDROUS
     Indication: MYCOBACTERIUM AVIUM COMPLEX INFECTION
     Dosage: UNK
     Route: 048
     Dates: start: 20100226
  8. ETHAMBUTOL [Concomitant]
     Active Substance: ETHAMBUTOL HYDROCHLORIDE
     Indication: LATENT TUBERCULOSIS
     Dosage: UNK
     Route: 048
     Dates: start: 20110226
  9. ZINC OXIDE. [Concomitant]
     Active Substance: ZINC OXIDE
  10. RALTEGRAVIR. [Suspect]
     Active Substance: RALTEGRAVIR
     Indication: HIV INFECTION
     Dosage: 400 MG, BID
     Route: 048
     Dates: start: 20100115, end: 20110715
  11. RALTEGRAVIR. [Suspect]
     Active Substance: RALTEGRAVIR
     Dosage: 400 MG, BID
     Route: 048
     Dates: start: 20110801
  12. STAVUDINE. [Suspect]
     Active Substance: STAVUDINE
     Indication: HIV INFECTION
     Dosage: 20 MG, BID
     Route: 048
     Dates: start: 20100809, end: 20110715
  13. PREDNISOLONE ACETATE. [Concomitant]
     Active Substance: PREDNISOLONE ACETATE
     Indication: CYTOMEGALOVIRUS CHORIORETINITIS
     Dosage: UNK
     Route: 047
     Dates: start: 20110311
  14. LAMIVUDINE. [Suspect]
     Active Substance: LAMIVUDINE
     Dosage: 150 MG, QD
     Route: 048
     Dates: start: 20110801
  15. HYDROCODONE BITARTRATE AND ACETAMINOPHEN [Concomitant]
     Active Substance: ACETAMINOPHEN\HYDROCODONE BITARTRATE
     Indication: EYE PAIN
     Dosage: UNK
     Route: 048
     Dates: start: 20110330
  16. CALCIUM CARBONATE. [Concomitant]
     Active Substance: CALCIUM CARBONATE
  17. MARAVIROC [Suspect]
     Active Substance: MARAVIROC
     Indication: HIV INFECTION
     Dosage: 300 MG, BID
     Route: 048
     Dates: start: 20110513, end: 20110715
  18. TIPRANAVIR [Suspect]
     Active Substance: TIPRANAVIR
     Indication: HIV INFECTION
     Dosage: 500 MG, BID
     Route: 048
     Dates: start: 20110225, end: 20110715
  19. TYLENOL [Concomitant]
     Active Substance: ACETAMINOPHEN
     Indication: PYREXIA
  20. TENOFOVIR DISOPROXIL FUMARATE. [Suspect]
     Active Substance: TENOFOVIR DISOPROXIL FUMARATE
     Dosage: 300 MG, QOD
     Route: 048
     Dates: start: 20110801
  21. RITONAVIR. [Suspect]
     Active Substance: RITONAVIR
     Dosage: 200 MG, QD
     Route: 048
     Dates: start: 20110801
  22. TIPRANAVIR [Suspect]
     Active Substance: TIPRANAVIR
     Dosage: 500 MG, BID
     Route: 048
     Dates: start: 20110801
  23. LAMIVUDINE. [Suspect]
     Active Substance: LAMIVUDINE
     Indication: HIV INFECTION
     Dosage: 150 MG, QD
     Route: 048
     Dates: start: 20110224, end: 20110715
  24. ATOVAQUONE. [Concomitant]
     Active Substance: ATOVAQUONE
     Indication: ANTIFUNGAL PROPHYLAXIS
     Dosage: UNK
     Route: 048
     Dates: start: 20120208
  25. FLUCONAZOLE. [Concomitant]
     Active Substance: FLUCONAZOLE
     Indication: CANDIDA INFECTION
     Dosage: UNK
     Route: 048
     Dates: start: 20110513
  26. MARAVIROC [Suspect]
     Active Substance: MARAVIROC
     Dosage: 300 MG, BID
     Route: 048
     Dates: start: 20110801
  27. VALGANCICLOVIR. [Concomitant]
     Active Substance: VALGANCICLOVIR
     Indication: CYTOMEGALOVIRUS CHORIORETINITIS
     Dosage: UNK
     Route: 048
     Dates: start: 20110208
  28. LORAZEPAM. [Concomitant]
     Active Substance: LORAZEPAM
     Indication: ANXIETY
     Dosage: UNK
     Route: 048
     Dates: start: 20110630
  29. ATROPINE. [Concomitant]
     Active Substance: ATROPINE
     Indication: CYTOMEGALOVIRUS CHORIORETINITIS
     Dosage: UNK
     Route: 047
     Dates: start: 20111103
  30. DAPSONE. [Concomitant]
     Active Substance: DAPSONE
     Indication: ANTIFUNGAL PROPHYLAXIS
     Dosage: UNK
     Route: 048
     Dates: start: 20110224
  31. MIRTAZAPINE. [Concomitant]
     Active Substance: MIRTAZAPINE
     Indication: DEPRESSION
     Dosage: UNK
     Route: 048
     Dates: start: 20101223

REACTIONS (3)
  - Clostridium difficile colitis [Recovered/Resolved]
  - Fanconi syndrome acquired [Unknown]
  - Clostridium difficile colitis [Recovered/Resolved]

NARRATIVE: CASE EVENT DATE: 20110801
